FAERS Safety Report 7424661-8 (Version None)
Quarter: 2011Q2

REPORT INFORMATION
  Report Type: 
  Country: None (occurrence: None)
  Receive Date: 20110419
  Receipt Date: 20110317
  Transmission Date: 20111010
  Serious: Yes (Hospitalization)
  Sender: FDA-Public Use
  Company Number: US-BAYER-201040652NA

PATIENT
  Age: 40 Year
  Sex: Female
  Weight: 79.819 kg

DRUGS (4)
  1. DROSPIRENONE AND ETHINYL ESTRADIOL [Suspect]
     Indication: ACNE
  2. YASMIN [Suspect]
     Indication: ACNE
  3. YAZ [Suspect]
     Indication: ACNE
  4. ZOLOFT [Concomitant]
     Indication: DEPRESSION

REACTIONS (3)
  - HEMIANOPIA HOMONYMOUS [None]
  - INJURY [None]
  - CEREBRAL INFARCTION [None]
